FAERS Safety Report 24750469 (Version 1)
Quarter: 2024Q4

REPORT INFORMATION
  Report Type: Spontaneous
  Country: US (occurrence: US)
  Receive Date: 20241218
  Receipt Date: 20241218
  Transmission Date: 20250115
  Serious: No
  Sender: TEIKOKU
  Company Number: US-TPU-TPU-2024-00611

PATIENT
  Sex: Female
  Weight: 72.57 kg

DRUGS (13)
  1. LIDOCAINE PATCH [Suspect]
     Active Substance: LIDOCAINE
     Indication: Back pain
  2. DILAUDID [Concomitant]
     Active Substance: HYDROMORPHONE HYDROCHLORIDE
  3. ARIXTRA [Concomitant]
     Active Substance: FONDAPARINUX SODIUM
  4. TIZANIDINE [Concomitant]
     Active Substance: TIZANIDINE
  5. PREDNISONE [Concomitant]
     Active Substance: PREDNISONE
  6. PLAQUENIL [Concomitant]
     Active Substance: HYDROXYCHLOROQUINE SULFATE
  7. PROTONIX [Concomitant]
     Active Substance: PANTOPRAZOLE SODIUM
  8. LEXAPRO [Concomitant]
     Active Substance: ESCITALOPRAM OXALATE
  9. XANAX [Concomitant]
     Active Substance: ALPRAZOLAM
  10. XOPENEX [Concomitant]
     Active Substance: LEVALBUTEROL HYDROCHLORIDE
  11. LEVALBUTEROL [Concomitant]
     Active Substance: LEVALBUTEROL
  12. PHENERGAN [Concomitant]
     Active Substance: PROMETHAZINE HYDROCHLORIDE
  13. ZOFRAN [Concomitant]
     Active Substance: ONDANSETRON HYDROCHLORIDE

REACTIONS (5)
  - Product dose omission issue [Unknown]
  - Anxiety [Unknown]
  - Cerebrovascular accident [Unknown]
  - Blindness [Unknown]
  - Cataract [Not Recovered/Not Resolved]
